FAERS Safety Report 7888326-0 (Version None)
Quarter: 2011Q4

REPORT INFORMATION
  Report Type: 
  Country: None (occurrence: None)
  Receive Date: 20111103
  Receipt Date: 20111024
  Transmission Date: 20120403
  Serious: Yes (Other)
  Sender: FDA-Public Use
  Company Number: US-BAYER-2010-008482

PATIENT
  Age: 26 Year
  Sex: Female
  Weight: 118.37 kg

DRUGS (2)
  1. YASMIN [Suspect]
     Indication: CONTRACEPTION
     Dates: start: 20070201, end: 20080101
  2. HYDROCODONE BITARTRATE [Concomitant]

REACTIONS (13)
  - CHOLELITHIASIS [None]
  - JOINT RANGE OF MOTION DECREASED [None]
  - EMOTIONAL DISTRESS [None]
  - ERYTHEMA [None]
  - INJURY [None]
  - OEDEMA PERIPHERAL [None]
  - ANXIETY [None]
  - THROMBOSIS [None]
  - PAIN IN EXTREMITY [None]
  - DEEP VEIN THROMBOSIS [None]
  - PAIN [None]
  - ABDOMINAL PAIN [None]
  - ABDOMINAL PAIN UPPER [None]
